FAERS Safety Report 13803612 (Version 1)
Quarter: 2017Q3

REPORT INFORMATION
  Report Type: Spontaneous
  Country: US (occurrence: US)
  Receive Date: 20170728
  Receipt Date: 20170728
  Transmission Date: 20171127
  Serious: Yes (Hospitalization)
  Sender: FDA-Public Use
  Company Number: None

PATIENT
  Age: 54 Year
  Sex: Female
  Weight: 70.37 kg

DRUGS (8)
  1. RISPERDONE [Concomitant]
     Active Substance: RISPERIDONE
  2. PROTEIN POWDER [Concomitant]
  3. FLAXSEED [Concomitant]
     Active Substance: FLAX SEED
  4. EFFEXOR [Suspect]
     Active Substance: VENLAFAXINE HYDROCHLORIDE
     Indication: MENOPAUSE
     Dosage: 2 TABLETS AM PO
     Route: 048
     Dates: start: 20170411, end: 20170719
  5. VITAMIN C [Concomitant]
     Active Substance: ASCORBIC ACID
  6. MINT TEA [Concomitant]
  7. VITA D [Concomitant]
  8. EFFEXOR [Suspect]
     Active Substance: VENLAFAXINE HYDROCHLORIDE
     Indication: DEPRESSION
     Dosage: 2 TABLETS AM PO
     Route: 048
     Dates: start: 20170411, end: 20170719

REACTIONS (2)
  - Eye pain [None]
  - Ocular discomfort [None]

NARRATIVE: CASE EVENT DATE: 20170708
